FAERS Safety Report 10987606 (Version 2)
Quarter: 2015Q2

REPORT INFORMATION
  Report Type: Spontaneous
  Country: US (occurrence: US)
  Receive Date: 20150404
  Receipt Date: 20150525
  Transmission Date: 20150821
  Serious: Yes (Other)
  Sender: FDA-Public Use
  Company Number: US-JNJFOC-20150312426

PATIENT
  Age: 56 Year
  Sex: Female
  Weight: 68.04 kg

DRUGS (1)
  1. REMICADE [Suspect]
     Active Substance: INFLIXIMAB
     Indication: CROHN^S DISEASE
     Route: 042
     Dates: start: 20140311, end: 20141119

REACTIONS (6)
  - Lymphadenopathy [Unknown]
  - Malabsorption [Unknown]
  - Pustular psoriasis [Unknown]
  - Alopecia areata [Unknown]
  - Metabolic disorder [Unknown]
  - Drug level increased [Unknown]

NARRATIVE: CASE EVENT DATE: 201409
